FAERS Safety Report 19033937 (Version 2)
Quarter: 2021Q1

REPORT INFORMATION
  Report Type: Spontaneous
  Country: US (occurrence: US)
  Receive Date: 20210319
  Receipt Date: 20210326
  Transmission Date: 20210420
  Serious: No
  Sender: FDA-Public Use
  Company Number: US-PFIZER INC-2021202993

PATIENT
  Age: 65 Year
  Sex: Female
  Weight: 54.88 kg

DRUGS (4)
  1. CBD OIL [Concomitant]
     Active Substance: CANNABIDIOL\HERBALS
     Dosage: UNK
  2. LUTEIN [Concomitant]
     Active Substance: LUTEIN
     Dosage: UNK
  3. ZEAXANTHIN [Concomitant]
     Active Substance: ZEAXANTHIN
     Dosage: UNK
  4. VANCOMYCIN HCL [Suspect]
     Active Substance: VANCOMYCIN HYDROCHLORIDE
     Indication: SEPSIS
     Dosage: UNK
     Route: 017

REACTIONS (3)
  - Rash [Unknown]
  - Incorrect route of product administration [Unknown]
  - Red man syndrome [Unknown]
